FAERS Safety Report 7417843-2 (Version None)
Quarter: 2011Q2

REPORT INFORMATION
  Report Type: 
  Country: None (occurrence: None)
  Receive Date: 20110412
  Receipt Date: 20110412
  Transmission Date: 20111010
  Serious: No
  Sender: FDA-Public Use
  Company Number: None

PATIENT
  Age: 71 Year
  Sex: Male
  Weight: 79 kg

DRUGS (2)
  1. LAMOTRIGINE [Suspect]
     Indication: MANIA
     Dosage: 100 MG HS PO
     Route: 048
     Dates: start: 20101202, end: 20110222
  2. DIVALPROEX [Suspect]
     Indication: MANIA
     Dosage: 500 MG HS PO
     Route: 048
     Dates: start: 20100601, end: 20110106

REACTIONS (1)
  - THROMBOCYTOPENIA [None]
